FAERS Safety Report 6377216-0 (Version None)
Quarter: 2009Q3

REPORT INFORMATION
  Report Type: 
  Country: None (occurrence: None)
  Receive Date: 20090925
  Receipt Date: 20090921
  Transmission Date: 20100115
  Serious: Yes (Other)
  Sender: FDA-Public Use
  Company Number: A0808286A

PATIENT
  Age: 26 Year
  Sex: Female

DRUGS (2)
  1. RELENZA [Suspect]
     Dosage: 2PUFF PER DAY
     Route: 055
     Dates: start: 20090914, end: 20090915
  2. NO CONCURRENT MEDICATION [Concomitant]

REACTIONS (2)
  - CONVULSION [None]
  - FATIGUE [None]
